FAERS Safety Report 4882888-3 (Version None)
Quarter: 2006Q1

REPORT INFORMATION
  Report Type: 
  Country: None (occurrence: None)
  Receive Date: 20060118
  Receipt Date: 20051220
  Transmission Date: 20060701
  Serious: Yes (Other)
  Sender: FDA-Public Use
  Company Number: US-SP-2005-02810

PATIENT
  Age: 37 Year
  Sex: Female

DRUGS (5)
  1. TUBERSOL [Suspect]
     Indication: TUBERCULIN TEST
     Route: 023
     Dates: start: 20051214
  2. PRILOSEC [Concomitant]
  3. SINGULAIR [Concomitant]
  4. ZOLOFT [Concomitant]
  5. ATIVAN [Concomitant]

REACTIONS (5)
  - ANAPHYLACTIC REACTION [None]
  - ASTHENIA [None]
  - DYSPNOEA [None]
  - PALPITATIONS [None]
  - WHEEZING [None]
